FAERS Safety Report 20978163 (Version 1)
Quarter: 2022Q2

REPORT INFORMATION
  Report Type: Spontaneous
  Country: IN (occurrence: IN)
  Receive Date: 20220618
  Receipt Date: 20220618
  Transmission Date: 20220721
  Serious: Yes (Life-Threatening, Hospitalization, Other)
  Sender: FDA-Public Use
  Company Number: IN-MLMSERVICE-20220606-3598540-3

PATIENT
  Age: 45 Year
  Sex: Male

DRUGS (1)
  1. METHOTREXATE [Suspect]
     Active Substance: METHOTREXATE
     Indication: Psoriasis
     Route: 048

REACTIONS (7)
  - Hepatotoxicity [Recovered/Resolved]
  - Renal injury [Recovered/Resolved]
  - Haematotoxicity [Recovered/Resolved]
  - Inappropriate schedule of product administration [Unknown]
  - Mucosal ulceration [Recovered/Resolved]
  - Skin ulcer [Recovered/Resolved]
  - Incorrect dose administered [Unknown]
